FAERS Safety Report 5712245-9 (Version None)
Quarter: 2008Q2

REPORT INFORMATION
  Report Type: 
  Country: None (occurrence: None)
  Receive Date: 20080421
  Receipt Date: 20080421
  Transmission Date: 20081010
  Serious: Yes (Hospitalization)
  Sender: FDA-Public Use
  Company Number: None

PATIENT
  Age: 60 Year
  Sex: Female
  Weight: 58.6 kg

DRUGS (7)
  1. DULOXETINE [Suspect]
     Indication: NEUROPATHY PERIPHERAL
     Dosage: 60 MG DAILY PO
     Route: 048
     Dates: start: 20070819, end: 20070827
  2. LEVOTHYROXINE SODIUM [Concomitant]
  3. INSULIN [Concomitant]
  4. LISINOPRIL [Concomitant]
  5. ASPIRIN [Concomitant]
  6. METFORMIN HCL [Concomitant]
  7. REPAGLINIDE [Concomitant]

REACTIONS (1)
  - STRESS CARDIOMYOPATHY [None]
